FAERS Safety Report 10194514 (Version 1)
Quarter: 2014Q2

REPORT INFORMATION
  Report Type: Spontaneous
  Country: US (occurrence: US)
  Receive Date: 20140526
  Receipt Date: 20140526
  Transmission Date: 20141212
  Serious: No
  Sender: FDA-Public Use
  Company Number: US-BIOGENIDEC-2014BI043411

PATIENT
  Sex: Female

DRUGS (2)
  1. TECFIDERA [Suspect]
     Indication: MULTIPLE SCLEROSIS
  2. SOLU-MEDROL [Concomitant]

REACTIONS (3)
  - Cardiac disorder [Unknown]
  - Drug hypersensitivity [Unknown]
  - Overdose [Unknown]
